FAERS Safety Report 9293027 (Version 1)
Quarter: 2013Q1

REPORT INFORMATION
  Report Type: Spontaneous
  Country: US (occurrence: None)
  Receive Date: 20121214
  Receipt Date: 20121214
  Transmission Date: 20140127
  Serious: Yes (Hospitalization, Other)
  Sender: FDA-Public Use
  Company Number: 1204USA00086

PATIENT
  Age: 53 Year
  Sex: Male
  Weight: 113.4 kg

DRUGS (1)
  1. JANUVIA (SITAGLIPTIN PHOSPHATE) [Suspect]
     Route: 048

REACTIONS (1)
  - Pancreatitis [None]
